FAERS Safety Report 16025218 (Version 1)
Quarter: 2019Q1

REPORT INFORMATION
  Report Type: Spontaneous
  Country: US (occurrence: US)
  Receive Date: 20190301
  Receipt Date: 20190301
  Transmission Date: 20190418
  Serious: No
  Sender: FDA-Public Use
  Company Number: US-SA-2019SA057802

PATIENT
  Age: 61 Year
  Sex: Female

DRUGS (18)
  1. OXYCODONE [Concomitant]
     Active Substance: OXYCODONE
  2. VITAMIN B1 [THIAMINE HYDROCHLORIDE] [Concomitant]
  3. ALLEGRA [Concomitant]
     Active Substance: FEXOFENADINE HYDROCHLORIDE
  4. SEROQUEL [Concomitant]
     Active Substance: QUETIAPINE FUMARATE
  5. THIAMINE. [Concomitant]
     Active Substance: THIAMINE
  6. ACIDOPHILUS [Concomitant]
     Active Substance: LACTOBACILLUS ACIDOPHILUS
  7. ZIPRASIDONE. [Concomitant]
     Active Substance: ZIPRASIDONE
  8. GABAPENTIN. [Concomitant]
     Active Substance: GABAPENTIN
  9. ZANAFLEX [Concomitant]
     Active Substance: TIZANIDINE HYDROCHLORIDE
  10. AUBAGIO [Suspect]
     Active Substance: TERIFLUNOMIDE
     Indication: MULTIPLE SCLEROSIS
     Dosage: 14 MG, QD
     Route: 048
     Dates: start: 20180522
  11. VITAMIN D3 [Concomitant]
     Active Substance: CHOLECALCIFEROL
  12. IMURAN [Concomitant]
     Active Substance: AZATHIOPRINE
  13. WELLBUTRIN [Concomitant]
     Active Substance: BUPROPION HYDROCHLORIDE
  14. PROTONIX [OMEPRAZOLE] [Concomitant]
     Active Substance: OMEPRAZOLE
  15. LEXAPRO [Concomitant]
     Active Substance: ESCITALOPRAM OXALATE
  16. PLAQUENIL [Concomitant]
     Active Substance: HYDROXYCHLOROQUINE SULFATE
  17. LORAZEPAM. [Concomitant]
     Active Substance: LORAZEPAM
  18. TOPAMAX [Concomitant]
     Active Substance: TOPIRAMATE

REACTIONS (1)
  - Alopecia [Unknown]

NARRATIVE: CASE EVENT DATE: 2018
